FAERS Safety Report 5238794-8 (Version None)
Quarter: 2007Q1

REPORT INFORMATION
  Report Type: 
  Country: None (occurrence: None)
  Receive Date: 20070215
  Receipt Date: 20070207
  Transmission Date: 20070707
  Serious: Yes (Hospitalization, Other)
  Sender: FDA-Public Use
  Company Number: AR-PFIZER INC-2006067219

PATIENT
  Sex: Male
  Weight: 82 kg

DRUGS (3)
  1. SU-011,248 [Suspect]
     Indication: RENAL CELL CARCINOMA STAGE UNSPECIFIED
     Route: 048
     Dates: start: 20060417, end: 20060520
  2. LEVOTHYROXINE SODIUM [Concomitant]
     Route: 048
  3. KLOSIDOL [Concomitant]
     Route: 048
     Dates: start: 20060519, end: 20060519

REACTIONS (20)
  - ACUTE HEPATIC FAILURE [None]
  - ATRIAL FIBRILLATION [None]
  - BACK PAIN [None]
  - BLOOD CREATINE PHOSPHOKINASE INCREASED [None]
  - DEHYDRATION [None]
  - ECHOCARDIOGRAM ABNORMAL [None]
  - ELECTROCARDIOGRAM T WAVE INVERSION [None]
  - HEPATIC ENCEPHALOPATHY [None]
  - HEPATITIS ACUTE [None]
  - HEPATORENAL SYNDROME [None]
  - HYPOGLYCAEMIA [None]
  - HYPOTENSION [None]
  - INAPPROPRIATE SCHEDULE OF DRUG ADMINISTRATION [None]
  - LEFT VENTRICULAR FAILURE [None]
  - MUSCLE INJURY [None]
  - OVERDOSE [None]
  - PAIN [None]
  - PROTHROMBIN TIME PROLONGED [None]
  - PYREXIA [None]
  - VENTRICULAR DYSFUNCTION [None]
